FAERS Safety Report 18074605 (Version 1)
Quarter: 2020Q3

REPORT INFORMATION
  Report Type: Spontaneous
  Country: US (occurrence: US)
  Receive Date: 20200727
  Receipt Date: 20200727
  Transmission Date: 20201103
  Serious: Yes (Other)
  Sender: FDA-Public Use
  Company Number: US-ABBVIE-19K-163-2909425-00

PATIENT
  Age: 48 Year
  Sex: Female
  Weight: 73.55 kg

DRUGS (3)
  1. LIOTHYRONINE [Concomitant]
     Active Substance: LIOTHYRONINE
     Indication: HYPOTHYROIDISM
     Dosage: 5MG / DAY
  2. SYNTHROID [Suspect]
     Active Substance: LEVOTHYROXINE SODIUM
     Route: 048
     Dates: start: 201903
  3. SYNTHROID [Suspect]
     Active Substance: LEVOTHYROXINE SODIUM
     Indication: HYPOTHYROIDISM
     Route: 048
     Dates: start: 2015, end: 201903

REACTIONS (9)
  - Arthralgia [Recovering/Resolving]
  - Dry skin [Not Recovered/Not Resolved]
  - Memory impairment [Recovered/Resolved]
  - Alopecia [Recovered/Resolved]
  - Drug ineffective [Recovering/Resolving]
  - Periorbital swelling [Not Recovered/Not Resolved]
  - Temperature intolerance [Recovered/Resolved]
  - Blood thyroid stimulating hormone increased [Recovering/Resolving]
  - Weight increased [Not Recovered/Not Resolved]

NARRATIVE: CASE EVENT DATE: 201812
